FAERS Safety Report 5145668-X (Version None)
Quarter: 2006Q4

REPORT INFORMATION
  Report Type: 
  Country: None (occurrence: None)
  Receive Date: 20061102
  Receipt Date: 20061012
  Transmission Date: 20070319
  Serious: Yes (Other)
  Sender: FDA-Public Use
  Company Number: 2006SP000399

PATIENT
  Sex: Female

DRUGS (6)
  1. PEG-INTRON [Suspect]
     Indication: HEPATITIS C
     Dosage: SEE IMAGE
     Dates: start: 20060213, end: 20060830
  2. PEG-INTRON [Suspect]
     Indication: HEPATITIS C
     Dosage: SEE IMAGE
     Dates: start: 20060213, end: 20060830
  3. RIBAVIRIN [Suspect]
     Indication: HEPATITIS C
  4. REMERON [Concomitant]
  5. ZOPICLONE [Concomitant]
  6. PARIET [Concomitant]

REACTIONS (4)
  - APHASIA [None]
  - DYSPHONIA [None]
  - DYSPNOEA [None]
  - HAEMOGLOBIN INCREASED [None]
